FAERS Safety Report 9607343 (Version 2)
Quarter: 2013Q4

REPORT INFORMATION
  Report Type: Spontaneous
  Country: US (occurrence: None)
  Receive Date: 20131004
  Receipt Date: 20131011
  Transmission Date: 20140711
  Serious: Yes (Death)
  Sender: FDA-Public Use
  Company Number: 201309000294

PATIENT
  Age: 8 Day
  Sex: Male

DRUGS (1)
  1. INOMAX [Suspect]
     Indication: OXYGEN SATURATION DECREASED
     Dosage: 20 PPM, CONTINUOUS, INHALATION
     Route: 055
     Dates: start: 20130911, end: 20130919

REACTIONS (4)
  - Premature baby [None]
  - Off label use [None]
  - Neonatal respiratory failure [None]
  - Neonatal respiratory arrest [None]
